FAERS Safety Report 6999063-9 (Version None)
Quarter: 2010Q3

REPORT INFORMATION
  Report Type: 
  Country: None (occurrence: None)
  Receive Date: 20100920
  Receipt Date: 20100907
  Transmission Date: 20110219
  Serious: Yes (Death)
  Sender: FDA-Public Use
  Company Number: US-ELI_LILLY_AND_COMPANY-US201007001983

PATIENT
  Sex: Female

DRUGS (3)
  1. FORTEO [Suspect]
  2. METHOTREXATE [Concomitant]
  3. IMMUNOSUPPRESSANTS [Concomitant]

REACTIONS (1)
  - DEATH [None]
